FAERS Safety Report 5323878-6 (Version None)
Quarter: 2007Q2

REPORT INFORMATION
  Report Type: 
  Country: None (occurrence: None)
  Receive Date: 20070514
  Receipt Date: 20070508
  Transmission Date: 20071010
  Serious: Yes (Life-Threatening)
  Sender: FDA-Public Use
  Company Number: AU-ASTRAZENECA-2007AP02634

PATIENT
  Age: 14143 Day
  Sex: Female

DRUGS (2)
  1. SEROQUEL [Suspect]
     Indication: PSYCHOTIC DISORDER
     Route: 048
     Dates: start: 20061202, end: 20061213
  2. VALPROATE SODIUM [Suspect]
     Indication: PSYCHOTIC DISORDER
     Route: 048
     Dates: start: 20061202, end: 20061213

REACTIONS (1)
  - THROMBOCYTOPENIA [None]
